FAERS Safety Report 6203528-7 (Version None)
Quarter: 2009Q2

REPORT INFORMATION
  Report Type: 
  Country: None (occurrence: None)
  Receive Date: 20090527
  Receipt Date: 20090526
  Transmission Date: 20091009
  Serious: Yes (Hospitalization)
  Sender: FDA-Public Use
  Company Number: US-RB-015784-09

PATIENT
  Age: 47 Year
  Sex: Male

DRUGS (1)
  1. SUBOXONE [Suspect]
     Route: 060
     Dates: start: 20090515

REACTIONS (4)
  - ANXIETY [None]
  - DEHYDRATION [None]
  - DIARRHOEA [None]
  - PANIC DISORDER [None]
